FAERS Safety Report 9838424 (Version 3)
Quarter: 2014Q4

REPORT INFORMATION
  Report Type: Spontaneous
  Country: US (occurrence: US)
  Receive Date: 20140123
  Receipt Date: 20141104
  Transmission Date: 20150529
  Serious: Yes (Hospitalization, Disabling, Other)
  Sender: FDA-Public Use
  Company Number: US-BAYER-2014-008093

PATIENT
  Age: 22 Year
  Sex: Female
  Weight: 75 kg

DRUGS (2)
  1. MIRENA [Suspect]
     Active Substance: LEVONORGESTREL
     Indication: CONTRACEPTION
     Dosage: 20 MCG/24HR, CONT
     Route: 015
     Dates: start: 20111223, end: 20120116
  2. MIRENA [Suspect]
     Active Substance: LEVONORGESTREL
     Indication: CONTRACEPTION
     Dosage: 20 MCG/24HR, CONT
     Route: 015
     Dates: start: 20120130, end: 201301

REACTIONS (19)
  - Pelvic pain [None]
  - Injury [None]
  - Back pain [None]
  - Emotional distress [None]
  - General physical health deterioration [None]
  - Abdominal pain lower [None]
  - Anhedonia [None]
  - Fear of death [None]
  - Depression [None]
  - Uterine perforation [None]
  - Pain [None]
  - Genital haemorrhage [None]
  - Abdominal pain [None]
  - Nausea [None]
  - Fatigue [None]
  - Deformity [None]
  - Dysuria [None]
  - Anxiety [None]
  - Medical device discomfort [None]

NARRATIVE: CASE EVENT DATE: 201201
